FAERS Safety Report 8493496-X (Version None)
Quarter: 2012Q2

REPORT INFORMATION
  Report Type: 
  Country: None (occurrence: None)
  Receive Date: 20120402
  Receipt Date: 20070919
  Transmission Date: 20120825
  Serious: Yes (Hospitalization)
  Sender: FDA-Public Use
  Company Number: PHEH2007US12498

PATIENT
  Age: 51 Year
  Sex: Female

DRUGS (2)
  1. EXFORGE [Suspect]
     Dosage: 5/320MG
  2. HYDROCHLOROTHIAZIDE [Suspect]

REACTIONS (2)
  - LIVER FUNCTION TEST ABNORMAL [None]
  - FATIGUE [None]
